FAERS Safety Report 11026412 (Version 1)
Quarter: 2015Q2

REPORT INFORMATION
  Report Type: Report from Study
  Country: US (occurrence: US)
  Receive Date: 20150414
  Receipt Date: 20150414
  Transmission Date: 20150821
  Serious: Yes (Other)
  Sender: FDA-Public Use
  Company Number: US-ABBVIE-15K-163-1374210-00

PATIENT
  Age: 57 Year
  Sex: Male

DRUGS (4)
  1. HUMIRA [Suspect]
     Active Substance: ADALIMUMAB
     Indication: RHEUMATOID ARTHRITIS
     Route: 065
     Dates: start: 2007, end: 2012
  2. MORPHINE/CODEINE [Concomitant]
     Indication: PRODUCT USED FOR UNKNOWN INDICATION
  3. METHOTREXATE [Concomitant]
     Active Substance: METHOTREXATE
     Indication: PRODUCT USED FOR UNKNOWN INDICATION
  4. HUMIRA [Suspect]
     Active Substance: ADALIMUMAB
     Route: 065
     Dates: start: 201307, end: 201411

REACTIONS (8)
  - Haematochezia [Unknown]
  - Gait disturbance [Recovered/Resolved]
  - Constipation [Unknown]
  - Dizziness [Unknown]
  - Anaemia [Unknown]
  - Back pain [Recovered/Resolved with Sequelae]
  - Large intestine polyp [Unknown]
  - Vomiting [Unknown]

NARRATIVE: CASE EVENT DATE: 20140313
